FAERS Safety Report 6647888-1 (Version None)
Quarter: 2010Q1

REPORT INFORMATION
  Report Type: 
  Country: None (occurrence: None)
  Receive Date: 20100324
  Receipt Date: 20100316
  Transmission Date: 20100710
  Serious: Yes (Hospitalization)
  Sender: FDA-Public Use
  Company Number: FR-ASTRAZENECA-2010SE11629

PATIENT
  Age: 8812 Day
  Sex: Female

DRUGS (4)
  1. SYMBICORT [Suspect]
     Indication: BRONCHITIS
     Route: 055
     Dates: start: 20100227, end: 20100308
  2. UNSPECIFIED ORAL CONTRACEPTION [Concomitant]
     Indication: CONTRACEPTION
     Route: 048
     Dates: start: 20100101
  3. SPEDIFEN [Concomitant]
     Indication: PAIN
     Route: 048
     Dates: start: 20100101
  4. UNSPECIFIED ORAL CORTICOSTEROIDS [Concomitant]
     Indication: BRONCHITIS
     Route: 048
     Dates: start: 20100224, end: 20100226

REACTIONS (3)
  - HEPATOMEGALY [None]
  - SPLENOMEGALY [None]
  - THROMBOCYTOPENIA [None]
